FAERS Safety Report 10575165 (Version 1)
Quarter: 2014Q4

REPORT INFORMATION
  Report Type: Spontaneous
  Country: FR (occurrence: FR)
  Receive Date: 20141111
  Receipt Date: 20141111
  Transmission Date: 20150529
  Serious: Yes (Hospitalization)
  Sender: FDA-Public Use
  Company Number: FR-ACCORD-026944

PATIENT
  Age: 48 Year
  Sex: Female

DRUGS (5)
  1. ONDANSETRON [Concomitant]
     Active Substance: ONDANSETRON
     Dosage: 8 MG PER COURSE
     Route: 042
     Dates: start: 20140916
  2. DOCETAXEL ACCORD [Suspect]
     Active Substance: DOCETAXEL
     Indication: BREAST CANCER
     Dosage: 192 MG PER COURSE
     Route: 042
     Dates: start: 20140916
  3. METHYLPREDNISOLONE. [Concomitant]
     Active Substance: METHYLPREDNISOLONE
     Dosage: 120 MG PER COURSE
     Dates: start: 20140916
  4. SOLUPRED [Concomitant]
     Active Substance: PREDNISOLONE
  5. EMLA [Concomitant]
     Active Substance: LIDOCAINE\PRILOCAINE

REACTIONS (4)
  - Pain [Unknown]
  - Pyrexia [Unknown]
  - Fungal infection [Unknown]
  - Urticaria [Unknown]

NARRATIVE: CASE EVENT DATE: 20140918
